FAERS Safety Report 10712409 (Version 1)
Quarter: 2015Q1

REPORT INFORMATION
  Report Type: Spontaneous
  Country: CH (occurrence: CH)
  Receive Date: 20150115
  Receipt Date: 20150115
  Transmission Date: 20150721
  Serious: Yes (Hospitalization)
  Sender: FDA-Public Use
  Company Number: CH-ROCHE-1521438

PATIENT
  Age: 68 Year
  Sex: Female

DRUGS (5)
  1. TOREM [Concomitant]
     Active Substance: TORSEMIDE
     Route: 065
  2. AVASTIN [Suspect]
     Active Substance: BEVACIZUMAB
     Indication: OVARIAN CANCER METASTATIC
     Route: 051
     Dates: start: 201311, end: 201408
  3. ZANIDIP [Concomitant]
     Active Substance: LERCANIDIPINE HYDROCHLORIDE
     Route: 065
  4. PERINDOPRIL [Concomitant]
     Active Substance: PERINDOPRIL
     Route: 065
  5. METFORMIN [Concomitant]
     Active Substance: METFORMIN HYDROCHLORIDE
     Indication: TYPE 2 DIABETES MELLITUS
     Route: 065

REACTIONS (4)
  - Renal failure [Unknown]
  - Hypertension [Unknown]
  - Proteinuria [Recovering/Resolving]
  - Thrombotic microangiopathy [Unknown]

NARRATIVE: CASE EVENT DATE: 2014
